FAERS Safety Report 4415038-8 (Version None)
Quarter: 2004Q3

REPORT INFORMATION
  Report Type: 
  Country: None (occurrence: None)
  Receive Date: 20040729
  Receipt Date: 20040714
  Transmission Date: 20050211
  Serious: No
  Sender: FDA-Public Use
  Company Number: US-SHR-03-006957

PATIENT
  Age: 50 Year
  Sex: Female

DRUGS (3)
  1. CLIMARA [Suspect]
     Indication: HORMONE REPLACEMENT THERAPY
     Dosage: 0.1 MG/D CONT, TRANSDERMAL
     Route: 062
     Dates: start: 20020401, end: 20030421
  2. TYLENOL [Concomitant]
  3. VICODIN [Concomitant]

REACTIONS (2)
  - DIFFICULTY IN WALKING [None]
  - SPINAL CORD NEOPLASM [None]
